FAERS Safety Report 5549320-8 (Version None)
Quarter: 2007Q4

REPORT INFORMATION
  Report Type: 
  Country: None (occurrence: None)
  Receive Date: 20071212
  Receipt Date: 20071205
  Transmission Date: 20080405
  Serious: Yes (Disabling)
  Sender: FDA-Public Use
  Company Number: GB-BAYER-200711320BNE

PATIENT
  Age: 45 Year
  Sex: Female

DRUGS (1)
  1. MIRENA [Suspect]
     Indication: MENORRHAGIA
     Route: 015
     Dates: start: 20021016, end: 20060428

REACTIONS (1)
  - URTICARIA [None]
